FAERS Safety Report 9100210 (Version 1)
Quarter: 2013Q1

REPORT INFORMATION
  Report Type: Spontaneous
  Country: IT (occurrence: IT)
  Receive Date: 20130215
  Receipt Date: 20130215
  Transmission Date: 20140127
  Serious: Yes (Hospitalization, Other)
  Sender: FDA-Public Use
  Company Number: IT-PFIZER INC-2013055535

PATIENT
  Age: 70 Year
  Sex: Male

DRUGS (5)
  1. TRIATEC [Suspect]
     Indication: HYPERTENSION
     Dosage: 5 MG, DAILY
     Route: 048
     Dates: start: 20100101, end: 20130127
  2. ATENOLOL [Concomitant]
     Dosage: UNK
  3. ESKIM [Concomitant]
     Dosage: UNK
  4. GLUCOPHAGE [Concomitant]
     Dosage: UNK
  5. INEGY [Concomitant]
     Dosage: UNK

REACTIONS (2)
  - Cough [Recovering/Resolving]
  - Chest pain [Unknown]
